FAERS Safety Report 13814198 (Version 1)
Quarter: 2017Q3

REPORT INFORMATION
  Report Type: Spontaneous
  Country: US (occurrence: US)
  Receive Date: 20170731
  Receipt Date: 20170731
  Transmission Date: 20171127
  Serious: Yes (Other)
  Sender: FDA-Public Use
  Company Number: US-BRISTOL-MYERS SQUIBB COMPANY-BMS-2017-065643

PATIENT
  Age: 75 Year
  Sex: Female
  Weight: 78.46 kg

DRUGS (2)
  1. WARFARIN SODIUM. [Suspect]
     Active Substance: WARFARIN SODIUM
     Indication: ATRIAL FIBRILLATION
     Route: 065
  2. ELIQUIS [Suspect]
     Active Substance: APIXABAN
     Indication: CEREBROVASCULAR ACCIDENT PROPHYLAXIS
     Dosage: 5 MG, BID
     Route: 048
     Dates: start: 201701

REACTIONS (5)
  - Dry skin [Unknown]
  - Hypertension [Unknown]
  - High frequency ablation [Unknown]
  - Blood count abnormal [Unknown]
  - Skin wrinkling [Unknown]

NARRATIVE: CASE EVENT DATE: 201701
